FAERS Safety Report 25564492 (Version 1)
Quarter: 2025Q3

REPORT INFORMATION
  Report Type: Spontaneous
  Country: US (occurrence: US)
  Receive Date: 20250716
  Receipt Date: 20250716
  Transmission Date: 20251020
  Serious: Yes (Other)
  Sender: NOVO NORDISK
  Company Number: US-NOVOPROD-1331331

PATIENT
  Age: 76 Year
  Sex: Male
  Weight: 97.5 kg

DRUGS (4)
  1. OZEMPIC [Suspect]
     Active Substance: SEMAGLUTIDE
     Indication: Product used for unknown indication
     Route: 058
  2. DUPIXENT [Suspect]
     Active Substance: DUPILUMAB
     Indication: Nasal polyps
     Route: 058
  3. DUPIXENT [Suspect]
     Active Substance: DUPILUMAB
     Indication: Illness
  4. ENZALUTAMIDE [Concomitant]
     Active Substance: ENZALUTAMIDE
     Indication: Prostate cancer

REACTIONS (5)
  - Impaired gastric emptying [Unknown]
  - Muscular weakness [Unknown]
  - Dysphonia [Unknown]
  - Prostatic specific antigen increased [Unknown]
  - Abdominal distension [Unknown]
